FAERS Safety Report 12649102 (Version 2)
Quarter: 2016Q4

REPORT INFORMATION
  Report Type: Spontaneous
  Country: US (occurrence: US)
  Receive Date: 20160812
  Receipt Date: 20161004
  Transmission Date: 20170207
  Serious: Yes (Other)
  Sender: FDA-Public Use
  Company Number: US-JNJFOC-20160809915

PATIENT
  Age: 14 Year
  Sex: Male
  Weight: 49.9 kg

DRUGS (8)
  1. KEPPRA [Concomitant]
     Active Substance: LEVETIRACETAM
     Route: 065
  2. DEPAKOTE [Concomitant]
     Active Substance: DIVALPROEX SODIUM
     Route: 065
  3. KLONOPIN [Concomitant]
     Active Substance: CLONAZEPAM
     Dosage: PRN
     Route: 065
  4. RISPERDAL [Suspect]
     Active Substance: RISPERIDONE
     Indication: AUTISM
     Dosage: FOR 10 DAYS
     Route: 048
     Dates: start: 201607, end: 201607
  5. RISPERDAL [Suspect]
     Active Substance: RISPERIDONE
     Indication: AUTISM
     Dosage: FOR 10 DAYS
     Route: 048
     Dates: start: 201607, end: 201607
  6. RISPERDAL [Suspect]
     Active Substance: RISPERIDONE
     Indication: SEVERE MYOCLONIC EPILEPSY OF INFANCY
     Dosage: FOR 10 DAYS
     Route: 048
     Dates: start: 201607, end: 201607
  7. MELATONIN [Concomitant]
     Active Substance: MELATONIN
     Route: 065
  8. RISPERDAL [Suspect]
     Active Substance: RISPERIDONE
     Indication: SEVERE MYOCLONIC EPILEPSY OF INFANCY
     Dosage: FOR 10 DAYS
     Route: 048
     Dates: start: 201607, end: 201607

REACTIONS (5)
  - Unevaluable event [Not Recovered/Not Resolved]
  - Insomnia [Recovered/Resolved]
  - Incorrect dose administered [Unknown]
  - Intentional self-injury [Not Recovered/Not Resolved]
  - Agitation [Not Recovered/Not Resolved]

NARRATIVE: CASE EVENT DATE: 201607
